FAERS Safety Report 24685004 (Version 1)
Quarter: 2024Q4

REPORT INFORMATION
  Report Type: Spontaneous
  Country: US (occurrence: US)
  Receive Date: 20241202
  Receipt Date: 20241202
  Transmission Date: 20250115
  Serious: No
  Sender: TARO
  Company Number: US-TARO PHARMACEUTICALS USA INC.-2024TAR01478

PATIENT

DRUGS (1)
  1. FLUOROURACIL [Suspect]
     Active Substance: FLUOROURACIL
     Indication: Precancerous cells present
     Dosage: UNK
     Route: 061

REACTIONS (3)
  - Lip blister [Unknown]
  - Oral mucosal blistering [Unknown]
  - Condition aggravated [Unknown]
